FAERS Safety Report 8906379 (Version 1)
Quarter: 2012Q4

REPORT INFORMATION
  Report Type: Spontaneous
  Country: US (occurrence: None)
  Receive Date: 20121112
  Receipt Date: 20121112
  Transmission Date: 20130627
  Serious: Yes (Other)
  Sender: FDA-Public Use
  Company Number: None

PATIENT
  Age: 55 Year
  Sex: Female
  Weight: 58.97 kg

DRUGS (1)
  1. METRONIDAZOL [Suspect]
     Indication: BACTERIAL INFECTION
     Route: 048
     Dates: start: 20121011, end: 20121014

REACTIONS (8)
  - Headache [None]
  - Vomiting [None]
  - Nausea [None]
  - Abdominal discomfort [None]
  - Dysgeusia [None]
  - Restlessness [None]
  - Malaise [None]
  - Agitation [None]
